FAERS Safety Report 12281355 (Version 3)
Quarter: 2016Q4

REPORT INFORMATION
  Report Type: Report from Study
  Country: US (occurrence: US)
  Receive Date: 20160419
  Receipt Date: 20161030
  Transmission Date: 20170207
  Serious: Yes (Other)
  Sender: FDA-Public Use
  Company Number: PHEH2016US009122

PATIENT
  Age: 20 Year
  Sex: Female

DRUGS (3)
  1. AFINITOR [Suspect]
     Active Substance: EVEROLIMUS
     Dosage: 50 MG, QW (WEEKLY)
     Route: 048
     Dates: start: 20130429
  2. AFINITOR [Suspect]
     Active Substance: EVEROLIMUS
     Indication: ANGIOMYOLIPOMA
     Dosage: 10 MG, QD
     Route: 048
     Dates: start: 20160229
  3. AFINITOR [Suspect]
     Active Substance: EVEROLIMUS
     Indication: BENIGN RENAL NEOPLASM
     Dosage: 50 MG, QW (WEEKLY)
     Route: 048

REACTIONS (4)
  - Oligomenorrhoea [Recovering/Resolving]
  - Petit mal epilepsy [Not Recovered/Not Resolved]
  - Generalised tonic-clonic seizure [Not Recovered/Not Resolved]
  - Seizure [Not Recovered/Not Resolved]

NARRATIVE: CASE EVENT DATE: 20160412
